FAERS Safety Report 24403712 (Version 1)
Quarter: 2024Q4

REPORT INFORMATION
  Report Type: Spontaneous
  Country: JP (occurrence: JP)
  Receive Date: 20241007
  Receipt Date: 20241007
  Transmission Date: 20250115
  Serious: No
  Sender: ROCHE
  Company Number: JP-CHUGAI-2023024227

PATIENT
  Age: 75 Year
  Sex: Female

DRUGS (4)
  1. GAZYVA [Interacting]
     Active Substance: OBINUTUZUMAB
     Indication: Follicular lymphoma stage IV
     Dosage: UNK
     Route: 065
  2. MODERNA COVID-19 VACCINE [Interacting]
     Active Substance: ELASOMERAN
     Indication: COVID-19 prophylaxis
     Route: 065
  3. BENDAMUSTINE [Concomitant]
     Active Substance: BENDAMUSTINE
     Indication: Follicular lymphoma stage IV
     Dosage: UNK
     Route: 042
  4. EVUSHELD [Concomitant]
     Active Substance: CILGAVIMAB\TIXAGEVIMAB
     Indication: COVID-19 prophylaxis

REACTIONS (3)
  - COVID-19 [Recovered/Resolved]
  - Humoral immune defect [Unknown]
  - Vaccine interaction [Unknown]
